FAERS Safety Report 13059518 (Version 1)
Quarter: 2016Q4

REPORT INFORMATION
  Report Type: Spontaneous
  Country: ES (occurrence: ES)
  Receive Date: 20161223
  Receipt Date: 20161223
  Transmission Date: 20170207
  Serious: Yes (Other)
  Sender: FDA-Public Use
  Company Number: ES-SA-2016SA230368

PATIENT
  Age: 44 Year
  Sex: Female
  Weight: 70 kg

DRUGS (7)
  1. HIDROFEROL [Suspect]
     Active Substance: CALCIFEDIOL
     Indication: ARTHRITIS
     Dosage: 0,266 MG. CADA DOS SEMANAS
     Route: 048
     Dates: start: 201610
  2. TOUJEO [Suspect]
     Active Substance: INSULIN GLARGINE
     Indication: LATENT AUTOIMMUNE DIABETES IN ADULTS
     Dosage: 1,5 ML DE SOLUCION CADA DIA
     Route: 030
     Dates: start: 201606
  3. JANUMET [Suspect]
     Active Substance: METFORMIN HYDROCHLORIDE\SITAGLIPTIN PHOSPHATE
     Indication: LATENT AUTOIMMUNE DIABETES IN ADULTS
     Dosage: 2 PASTILLAS CADA DIA
     Route: 048
     Dates: start: 201404
  4. SOLOSTAR [Concomitant]
     Active Substance: DEVICE
     Indication: LATENT AUTOIMMUNE DIABETES IN ADULTS
     Dates: start: 201606
  5. PRAVAFENIX [Suspect]
     Active Substance: FENOFIBRATE\PRAVASTATIN
     Indication: BLOOD CHOLESTEROL INCREASED
     Dosage: 1 PASTILLA CADA DIA
     Route: 048
     Dates: start: 201610
  6. METOJECT [Suspect]
     Active Substance: METHOTREXATE SODIUM
     Indication: RHEUMATOID ARTHRITIS
     Dosage: 15 MG. CADA SEMANA
     Route: 030
     Dates: start: 201604
  7. EUTIROX [Suspect]
     Active Substance: LEVOTHYROXINE SODIUM
     Indication: AUTOIMMUNE HYPOTHYROIDISM
     Dosage: 100 MICROGRAMOS CADA DIA
     Route: 048
     Dates: start: 200101

REACTIONS (5)
  - Vomiting [Not Recovered/Not Resolved]
  - Fatigue [Not Recovered/Not Resolved]
  - Tremor [Not Recovered/Not Resolved]
  - Nausea [Not Recovered/Not Resolved]
  - Abdominal pain [Not Recovered/Not Resolved]

NARRATIVE: CASE EVENT DATE: 201610
